FAERS Safety Report 11179622 (Version 1)
Quarter: 2015Q2

REPORT INFORMATION
  Report Type: Spontaneous
  Country: AU (occurrence: None)
  Receive Date: 20150601
  Receipt Date: 20150601
  Transmission Date: 20150821
  Serious: Yes (Hospitalization)
  Sender: FDA-Public Use
  Company Number: GAM-126-15-AU

PATIENT
  Age: 50 Year
  Sex: Female

DRUGS (6)
  1. RISEDRONATE [Concomitant]
     Active Substance: RISEDRONATE SODIUM
  2. PANTOPRAZOLE [Concomitant]
     Active Substance: PANTOPRAZOLE SODIUM
  3. PARACETAMOL [Concomitant]
     Active Substance: ACETAMINOPHEN
  4. PREDNISOLONE. [Concomitant]
     Active Substance: PREDNISOLONE
  5. OCTAGAM IMMUNE GLOBULIN (HUMAN) [Suspect]
     Active Substance: HUMAN IMMUNOGLOBULIN G
     Indication: DERMATOMYOSITIS
     Dosage: 60 G (1X 4/WEEK)
     Dates: start: 20150428, end: 20150428
  6. CELECOXIB. [Concomitant]
     Active Substance: CELECOXIB

REACTIONS (7)
  - Agitation [None]
  - Eye pruritus [None]
  - Feeling cold [None]
  - Dyspnoea [None]
  - Infusion related reaction [None]
  - Chills [None]
  - Throat tightness [None]

NARRATIVE: CASE EVENT DATE: 20150428
